FAERS Safety Report 20103048 (Version 1)
Quarter: 2021Q4

REPORT INFORMATION
  Report Type: Spontaneous
  Country: RU (occurrence: RU)
  Receive Date: 20211123
  Receipt Date: 20211123
  Transmission Date: 20220303
  Serious: Yes (Hospitalization)
  Sender: FDA-Public Use
  Company Number: RU-BAYER-2021A247354

PATIENT
  Age: 60 Year
  Sex: Female

DRUGS (3)
  1. CIPROFLOXACIN [Suspect]
     Active Substance: CIPROFLOXACIN
     Indication: Post procedural fistula
     Dosage: 500 MG, BID
     Route: 048
  2. CIPROFLOXACIN [Suspect]
     Active Substance: CIPROFLOXACIN
     Indication: Antibiotic therapy
  3. CEFTAZIDIME [Concomitant]
     Active Substance: CEFTAZIDIME
     Dosage: 1 G, BID
     Route: 030

REACTIONS (2)
  - Medical device site joint infection [None]
  - Drug ineffective [None]

NARRATIVE: CASE EVENT DATE: 20180730
